FAERS Safety Report 4517071-4 (Version None)
Quarter: 2004Q4

REPORT INFORMATION
  Report Type: 
  Country: None (occurrence: None)
  Receive Date: 20041130
  Receipt Date: 20041117
  Transmission Date: 20050328
  Serious: Yes (Hospitalization, Other)
  Sender: FDA-Public Use
  Company Number: 2004241887JP

PATIENT
  Age: 71 Year
  Sex: Male

DRUGS (4)
  1. CABERGOLINE [Suspect]
     Indication: PARKINSON'S DISEASE
     Dosage: ORAL
     Route: 048
  2. PERGOLIDE MESYLATE [Concomitant]
  3. BROMOCRIPTINE MESYLATE [Concomitant]
  4. SELEGILINE HYDROCHLORIDE (SELEGILINE HYDROCHLORIDE) [Concomitant]

REACTIONS (6)
  - AORTIC VALVE INCOMPETENCE [None]
  - CARDIAC FAILURE [None]
  - DYSKINESIA [None]
  - HALLUCINATION [None]
  - MITRAL VALVE INCOMPETENCE [None]
  - OEDEMA [None]
